FAERS Safety Report 24789290 (Version 1)
Quarter: 2024Q4

REPORT INFORMATION
  Report Type: Spontaneous
  Country: IN (occurrence: IN)
  Receive Date: 20241230
  Receipt Date: 20241230
  Transmission Date: 20250115
  Serious: Yes (Hospitalization)
  Sender: MYLAN
  Company Number: IN-MYLANLABS-2024M1116071

PATIENT
  Age: 28 Year
  Sex: Female

DRUGS (3)
  1. HEPARIN [Suspect]
     Active Substance: HEPARIN SODIUM
     Indication: Anticoagulant therapy
     Dosage: UNK
     Route: 065
  2. STREPTOKINASE [Suspect]
     Active Substance: STREPTOKINASE
     Indication: Prosthetic cardiac valve thrombosis
     Dosage: 250000 INTERNATIONAL UNIT, INFUSION
     Route: 065
  3. STREPTOKINASE [Suspect]
     Active Substance: STREPTOKINASE
     Dosage: 100000 INTERNATIONAL UNIT, QH, CONTINUED FOR THE 72 HOURS, INFUSION
     Route: 065

REACTIONS (2)
  - Drug ineffective [Unknown]
  - Maternal exposure during pregnancy [Unknown]
